FAERS Safety Report 5815006-5 (Version None)
Quarter: 2008Q3

REPORT INFORMATION
  Report Type: 
  Country: None (occurrence: None)
  Receive Date: 20080718
  Receipt Date: 20080714
  Transmission Date: 20090109
  Serious: Yes (Death)
  Sender: FDA-Public Use
  Company Number: A0738246A

PATIENT
  Age: 84 Year
  Sex: Female
  Weight: 50 kg

DRUGS (1)
  1. SERETIDE [Suspect]
     Route: 055
     Dates: start: 20080307, end: 20080707

REACTIONS (3)
  - CARDIAC FAILURE [None]
  - INTESTINAL OPERATION [None]
  - THROMBOSIS [None]
